FAERS Safety Report 8211037-9 (Version None)
Quarter: 2012Q1

REPORT INFORMATION
  Report Type: 
  Country: None (occurrence: None)
  Receive Date: 20120315
  Receipt Date: 20120306
  Transmission Date: 20120608
  Serious: Yes (Other)
  Sender: FDA-Public Use
  Company Number: PHEH2012US005136

PATIENT
  Sex: Female

DRUGS (2)
  1. VOLTAREN [Suspect]
     Route: 048
  2. VIVELLE-DOT [Suspect]

REACTIONS (2)
  - GASTRIC ULCER [None]
  - GASTRIC ULCER HAEMORRHAGE [None]
